FAERS Safety Report 9008945 (Version 1)
Quarter: 2013Q1

REPORT INFORMATION
  Report Type: Spontaneous
  Country: US (occurrence: US)
  Receive Date: 20130111
  Receipt Date: 20130111
  Transmission Date: 20140127
  Serious: Yes (Hospitalization, Other)
  Sender: FDA-Public Use
  Company Number: US-009507513-1301USA001578

PATIENT
  Age: 32 Year
  Sex: Female

DRUGS (8)
  1. SINGULAIR [Suspect]
     Indication: PANIC DISORDER
     Route: 048
  2. GASTER D [Suspect]
     Route: 048
  3. MERCAZOLE [Suspect]
  4. PAXIL [Suspect]
     Dosage: 10 MG, QD
     Route: 048
  5. CLARITIN [Suspect]
     Route: 048
  6. CLEANAL [Suspect]
  7. ZITHROMAC [Suspect]
     Route: 048
  8. HOKUNALIN [Concomitant]
     Route: 062

REACTIONS (3)
  - Abortion spontaneous [Unknown]
  - Vomiting [Unknown]
  - Exposure during pregnancy [Unknown]
